FAERS Safety Report 19935796 (Version 6)
Quarter: 2022Q1

REPORT INFORMATION
  Report Type: Report from Study
  Country: US (occurrence: US)
  Receive Date: 20211009
  Receipt Date: 20220111
  Transmission Date: 20220423
  Serious: Yes (Hospitalization)
  Sender: FDA-Public Use
  Company Number: US-NOVARTISTESTPH-NVSC2021US231248

PATIENT
  Age: 77 Year
  Sex: Female

DRUGS (1)
  1. KISQALI [Suspect]
     Active Substance: RIBOCICLIB
     Indication: Breast cancer
     Dosage: 600 MG, QD
     Route: 048
     Dates: start: 20211006

REACTIONS (8)
  - COVID-19 [Recovered/Resolved]
  - Abdominal discomfort [Recovering/Resolving]
  - Nausea [Recovering/Resolving]
  - Rash [Recovered/Resolved]
  - Pruritus [Recovered/Resolved]
  - Dry skin [Recovering/Resolving]
  - Pain in extremity [Recovering/Resolving]
  - Incorrect dose administered [Not Recovered/Not Resolved]

NARRATIVE: CASE EVENT DATE: 20211006
